FAERS Safety Report 8871278 (Version 1)
Quarter: 2012Q4

REPORT INFORMATION
  Report Type: 
  Country: US (occurrence: US)
  Receive Date: 20121026
  Receipt Date: 20121026
  Transmission Date: 20130627
  Serious: No
  Sender: FDA-Public Use
  Company Number: US-AMGEN-USASP2012048292

PATIENT
  Sex: Female
  Weight: 63.49 kg

DRUGS (6)
  1. ENBREL [Suspect]
     Indication: PRODUCT USED FOR UNKNOWN INDICATION
     Dosage: 50 mg, qwk
     Route: 058
  2. HYZAAR [Concomitant]
     Dosage: UNK (50-12.5)
  3. METHOTREXATE [Concomitant]
     Dosage: 2.5 mg, UNK
  4. SYNTHROID [Concomitant]
     Dosage: 100 MCG, UNK
  5. METOPROLOL [Concomitant]
     Dosage: 25 mg, UNK
  6. POTASSIUM [Concomitant]
     Dosage: 75 mg, UNK

REACTIONS (1)
  - Hepatic enzyme increased [Unknown]
